FAERS Safety Report 16987348 (Version 1)
Quarter: 2019Q4

REPORT INFORMATION
  Report Type: Spontaneous
  Country: NG (occurrence: NG)
  Receive Date: 20191102
  Receipt Date: 20191102
  Transmission Date: 20200122
  Serious: Yes (Death, Other)
  Sender: FDA-Public Use
  Company Number: NG-MICRO LABS LIMITED-ML2019-02972

PATIENT

DRUGS (2)
  1. PIROXICAM. [Suspect]
     Active Substance: PIROXICAM
  2. NOVALGIN [Concomitant]

REACTIONS (3)
  - Dizziness [Fatal]
  - Gastrointestinal haemorrhage [Fatal]
  - Faeces discoloured [Fatal]
